FAERS Safety Report 19226368 (Version 2)
Quarter: 2021Q3

REPORT INFORMATION
  Report Type: Spontaneous
  Country: DE (occurrence: DE)
  Receive Date: 20210506
  Receipt Date: 20210806
  Transmission Date: 20211014
  Serious: Yes (Hospitalization, Other)
  Sender: FDA-Public Use
  Company Number: NVSC2021DE099029

PATIENT
  Sex: Male
  Weight: 95 kg

DRUGS (1)
  1. COSENTYX [Suspect]
     Active Substance: SECUKINUMAB
     Indication: PSORIASIS
     Dosage: UNK
     Route: 065
     Dates: start: 201802, end: 202007

REACTIONS (1)
  - Neuroendocrine carcinoma of the skin [Recovered/Resolved with Sequelae]

NARRATIVE: CASE EVENT DATE: 202007
